FAERS Safety Report 17438291 (Version 1)
Quarter: 2020Q1

REPORT INFORMATION
  Report Type: Spontaneous
  Country: IT (occurrence: IT)
  Receive Date: 20200220
  Receipt Date: 20200220
  Transmission Date: 20200409
  Serious: Yes (Hospitalization, Other)
  Sender: FDA-Public Use
  Company Number: IT-AMGEN-ITASP2020027002

PATIENT
  Age: 48 Year
  Sex: Male

DRUGS (1)
  1. AMGEVITA [Suspect]
     Active Substance: ADALIMUMAB
     Indication: COLITIS ULCERATIVE
     Dosage: 40 MILLIGRAM, QWK, AMGEVITA 20 MG SOLUTION FOR INJECTION IN PRE-FILLED SYRINGE
     Route: 058
     Dates: start: 20190304, end: 20190316

REACTIONS (1)
  - Meningitis [Recovered/Resolved]

NARRATIVE: CASE EVENT DATE: 20190316
